FAERS Safety Report 8442636-7 (Version None)
Quarter: 2012Q2

REPORT INFORMATION
  Report Type: 
  Country: None (occurrence: None)
  Receive Date: 20120615
  Receipt Date: 20111125
  Transmission Date: 20120825
  Serious: No
  Sender: FDA-Public Use
  Company Number: US-NOVEN-11US003679

PATIENT
  Sex: Male
  Weight: 49.887 kg

DRUGS (2)
  1. SERTRALINE HYDROCHLORIDE [Concomitant]
     Indication: DEPRESSION
     Dosage: 100 MG, UNK
     Route: 048
  2. DAYTRANA [Suspect]
     Indication: ATTENTION DEFICIT/HYPERACTIVITY DISORDER
     Dosage: 30 MG X2, DAILY
     Route: 062
     Dates: start: 20110901

REACTIONS (6)
  - APPLICATION SITE PAIN [None]
  - APPLICATION SITE IRRITATION [None]
  - WRONG TECHNIQUE IN DRUG USAGE PROCESS [None]
  - PRODUCT QUALITY ISSUE [None]
  - DRUG ADMINISTRATION ERROR [None]
  - APPLICATION SITE ERYTHEMA [None]
